FAERS Safety Report 9370565 (Version 2)
Quarter: 2013Q3

REPORT INFORMATION
  Report Type: Spontaneous
  Country: AU (occurrence: AU)
  Receive Date: 20130626
  Receipt Date: 20130729
  Transmission Date: 20140515
  Serious: Yes (Hospitalization, Other)
  Sender: FDA-Public Use
  Company Number: AU-B.I. PHARMACEUTICALS,INC./RIDGEFIELD-2013-AU-00769AU

PATIENT
  Age: 86 Year
  Sex: Female
  Weight: 57 kg

DRUGS (2)
  1. PRADAXA [Suspect]
     Indication: ATRIAL FIBRILLATION
     Dosage: 220 MG
     Dates: start: 20110912, end: 20111008
  2. VESICARE [Suspect]
     Dosage: 5 MG
     Dates: start: 20110926, end: 20111010

REACTIONS (9)
  - Transient ischaemic attack [Recovered/Resolved]
  - Speech disorder [Recovered/Resolved with Sequelae]
  - Hallucination [Recovered/Resolved with Sequelae]
  - Agitation [Recovered/Resolved with Sequelae]
  - Malaise [Recovered/Resolved with Sequelae]
  - Psychotic disorder [Unknown]
  - Disorientation [Unknown]
  - Fatigue [Unknown]
  - Headache [Unknown]
